FAERS Safety Report 19002636 (Version 1)
Quarter: 2021Q1

REPORT INFORMATION
  Report Type: Spontaneous
  Country: US (occurrence: US)
  Receive Date: 20210311
  Receipt Date: 20210311
  Transmission Date: 20210420
  Serious: No
  Sender: FDA-Public Use
  Company Number: None

PATIENT
  Age: 61 Year
  Sex: Male

DRUGS (1)
  1. ENALAPRIL (ENALAPRIL MALEATE 10MG TAB) [Suspect]
     Active Substance: ENALAPRIL MALEATE
     Indication: HYPERTENSION
     Dates: start: 20170803, end: 20170803

REACTIONS (1)
  - Angioedema [None]

NARRATIVE: CASE EVENT DATE: 20170802
